FAERS Safety Report 13129686 (Version 1)
Quarter: 2017Q1

REPORT INFORMATION
  Report Type: Spontaneous
  Country: US (occurrence: US)
  Receive Date: 20170119
  Receipt Date: 20170119
  Transmission Date: 20170428
  Serious: No
  Sender: FDA-Public Use
  Company Number: US-PFIZER INC-2017018667

PATIENT
  Age: 77 Year
  Sex: Male
  Weight: 89.8 kg

DRUGS (1)
  1. DOXYCYCLINE HYCLATE. [Suspect]
     Active Substance: DOXYCYCLINE HYCLATE
     Indication: EPIDIDYMITIS
     Dosage: UNK

REACTIONS (1)
  - Diarrhoea [Unknown]
